FAERS Safety Report 9655534 (Version 1)
Quarter: 2013Q4

REPORT INFORMATION
  Report Type: Spontaneous
  Country: DZ (occurrence: DZ)
  Receive Date: 20131029
  Receipt Date: 20131029
  Transmission Date: 20140711
  Serious: Yes (Death, Other)
  Sender: FDA-Public Use
  Company Number: DZ-ELI_LILLY_AND_COMPANY-DZ201310008988

PATIENT
  Sex: Female
  Weight: 52 kg

DRUGS (3)
  1. HUMALOG LISPRO [Suspect]
     Indication: GLUCOSE TOLERANCE TEST
     Dosage: 8 U, UNK
     Route: 058
     Dates: start: 20131022
  2. GLUCOPHAGE [Concomitant]
     Indication: TYPE 2 DIABETES MELLITUS
     Dosage: 850 MG, QD
  3. GLIMEPIRIDE [Concomitant]
     Indication: TYPE 2 DIABETES MELLITUS
     Dosage: 10 MG, QD

REACTIONS (1)
  - Anaphylactic shock [Fatal]
